FAERS Safety Report 23143404 (Version 1)
Quarter: 2023Q4

REPORT INFORMATION
  Report Type: Spontaneous
  Country: US (occurrence: US)
  Receive Date: 20231103
  Receipt Date: 20231103
  Transmission Date: 20240110
  Serious: No
  Sender: FDA-Public Use
  Company Number: US-MYOVANT SCIENCES GMBH-2023MYSCI0800113

PATIENT
  Age: 81 Year
  Sex: Male

DRUGS (5)
  1. ORGOVYX [Suspect]
     Active Substance: RELUGOLIX
     Indication: Prostate cancer
     Dosage: 360 MILLIGRAM, ONE TIME DOSE
     Route: 048
     Dates: start: 202211, end: 202211
  2. ORGOVYX [Suspect]
     Active Substance: RELUGOLIX
     Dosage: 120 MILLIGRAM, QD
     Route: 048
     Dates: start: 202211
  3. UNSPECIFIED INGREDIENT [Concomitant]
     Active Substance: UNSPECIFIED INGREDIENT
     Indication: Asthenia
     Dosage: UNK
     Route: 065
  4. LIDOCAINE [Concomitant]
     Active Substance: LIDOCAINE
     Indication: Back pain
     Dosage: UNK
     Route: 065
  5. SALONPAS                           /00735901/ [Concomitant]
     Indication: Back pain
     Dosage: UNK
     Route: 065

REACTIONS (5)
  - Muscular weakness [Not Recovered/Not Resolved]
  - Back disorder [Not Recovered/Not Resolved]
  - Fatigue [Not Recovered/Not Resolved]
  - Myalgia [Unknown]
  - Bone pain [Unknown]

NARRATIVE: CASE EVENT DATE: 20221101
